FAERS Safety Report 6284517-3 (Version None)
Quarter: 2009Q3

REPORT INFORMATION
  Report Type: 
  Country: None (occurrence: None)
  Receive Date: 20090727
  Receipt Date: 20090716
  Transmission Date: 20100115
  Serious: Yes (Other)
  Sender: FDA-Public Use
  Company Number: US-AMGEN-QUU352914

PATIENT
  Sex: Female
  Weight: 88.5 kg

DRUGS (10)
  1. NEULASTA [Suspect]
     Indication: CHEMOTHERAPY
     Route: 065
  2. AMITRIPTYLINE HCL [Concomitant]
  3. VISTARIL [Concomitant]
  4. AMBIEN [Concomitant]
  5. TRANXENE [Concomitant]
  6. CALCIUM [Concomitant]
  7. MULTI-VITAMINS [Concomitant]
  8. IMITREX [Concomitant]
  9. TAXOL [Concomitant]
  10. SYNTHROID [Concomitant]

REACTIONS (3)
  - HYPOAESTHESIA [None]
  - PAIN [None]
  - PARAESTHESIA [None]
